FAERS Safety Report 10070187 (Version 2)
Quarter: 2014Q2

REPORT INFORMATION
  Report Type: Report from Study
  Country: JP (occurrence: JP)
  Receive Date: 20140410
  Receipt Date: 20140429
  Transmission Date: 20141212
  Serious: Yes (Other)
  Sender: FDA-Public Use
  Company Number: PHHY2014JP041882

PATIENT
  Age: 53 Year
  Sex: Male
  Weight: 67 kg

DRUGS (8)
  1. EQUA [Suspect]
     Indication: TYPE 2 DIABETES MELLITUS
     Dosage: 100 MG, UNK
     Route: 048
     Dates: start: 20130331
  2. CO-DIOVAN [Suspect]
     Indication: HYPERTENSION
     Dosage: 1 DF, UNK
     Route: 048
  3. LIVALO [Suspect]
     Indication: DYSLIPIDAEMIA
     Dosage: 1 MG, DAILY
     Route: 048
  4. LANTUS [Suspect]
     Indication: TYPE 2 DIABETES MELLITUS
     Dosage: 24 IU, UNK
     Route: 058
  5. NEXIUM//ESOMEPRAZOLE MAGNESIUM [Concomitant]
     Indication: GASTROOESOPHAGEAL REFLUX DISEASE
     Route: 048
  6. EURODIN [Concomitant]
     Indication: INSOMNIA
     Route: 048
  7. ROZEREM [Concomitant]
     Indication: INSOMNIA
     Route: 048
  8. CLARITIN [Concomitant]
     Indication: DERMATITIS ATOPIC
     Route: 048

REACTIONS (1)
  - Blood creatine phosphokinase increased [Recovered/Resolved]
